FAERS Safety Report 15401860 (Version 1)
Quarter: 2018Q3

REPORT INFORMATION
  Report Type: Spontaneous
  Country: CN (occurrence: CN)
  Receive Date: 20180919
  Receipt Date: 20180919
  Transmission Date: 20181010
  Serious: Yes (Hospitalization)
  Sender: FDA-Public Use
  Company Number: CN-BAYER-2017-165195

PATIENT
  Age: 85 Year
  Sex: Female

DRUGS (3)
  1. ADALAT [Suspect]
     Active Substance: NIFEDIPINE
     Indication: HYPERTENSION
     Dosage: UNK
     Route: 048
  2. BAYASPIRIN 100 MG [Suspect]
     Active Substance: ASPIRIN
     Indication: LACUNAR INFARCTION
     Dosage: 1 DF, QD
     Route: 048
     Dates: end: 2017
  3. AMLODIPINE BESYLATE. [Concomitant]
     Active Substance: AMLODIPINE BESYLATE
     Indication: HYPERTENSION
     Dosage: UNK
     Route: 048
     Dates: start: 201809

REACTIONS (6)
  - Ecchymosis [None]
  - Rash macular [None]
  - Renal failure [None]
  - Dizziness [None]
  - Cardiac failure [None]
  - Petechiae [None]

NARRATIVE: CASE EVENT DATE: 2016
